FAERS Safety Report 4263617-3 (Version None)
Quarter: 2004Q1

REPORT INFORMATION
  Report Type: 
  Country: None (occurrence: None)
  Receive Date: 20040102
  Receipt Date: 20031223
  Transmission Date: 20041129
  Serious: Yes (Hospitalization, Disabling)
  Sender: FDA-Public Use
  Company Number: ZONI001274

PATIENT
  Age: 43 Year
  Sex: Male

DRUGS (5)
  1. ZONEGRAN [Suspect]
     Indication: MIGRAINE
     Dosage: 100 MG DAILY ORAL
     Route: 048
     Dates: start: 20031001, end: 20031202
  2. TOPAMAX [Concomitant]
  3. AMITRIPTYLINE HCL [Concomitant]
  4. ZOMIG [Concomitant]
  5. IMITREX [Concomitant]

REACTIONS (3)
  - BONE MARROW DEPRESSION [None]
  - NEUTROPHIL COUNT DECREASED [None]
  - WHITE BLOOD CELL COUNT DECREASED [None]
